FAERS Safety Report 9260265 (Version 1)
Quarter: 2013Q2

REPORT INFORMATION
  Report Type: Spontaneous
  Country: US (occurrence: US)
  Receive Date: 20130429
  Receipt Date: 20130429
  Transmission Date: 20140414
  Serious: No
  Sender: FDA-Public Use
  Company Number: US-PFIZER INC-2013133458

PATIENT
  Age: 53 Year
  Sex: Female
  Weight: 99.77 kg

DRUGS (3)
  1. NICOTROL INHALER [Suspect]
     Indication: SMOKING CESSATION THERAPY
     Dosage: UNKNOWN DOSE (TWO PUFFS) DAILY
     Route: 055
     Dates: start: 20130325, end: 201303
  2. NICOTROL INHALER [Suspect]
     Dosage: TWO 10MG CARTRIDGES
     Route: 055
     Dates: start: 201303, end: 20130401
  3. SYNTHROID [Concomitant]
     Indication: THYROID DISORDER
     Dosage: 150 UG, 1X/DAY

REACTIONS (2)
  - Product taste abnormal [Unknown]
  - Dysgeusia [Unknown]
